FAERS Safety Report 9035677 (Version 1)
Quarter: 2013Q1

REPORT INFORMATION
  Report Type: Report from Study
  Country: US (occurrence: US)
  Receive Date: 20130129
  Receipt Date: 20130129
  Transmission Date: 20140127
  Serious: No
  Sender: FDA-Public Use
  Company Number: US-ABBOTT-12P-163-0915062-00

PATIENT
  Age: 31 Year
  Sex: Male

DRUGS (3)
  1. HUMIRA 40 MG/0.8 ML PEN [Suspect]
     Indication: PSORIASIS
     Dosage: SUPPOSED TO BE 80 MG BUT HAD MISFIRE
     Dates: start: 20120304, end: 20120304
  2. HUMIRA 40 MG/0.8 ML PEN [Suspect]
     Indication: PSORIASIS
     Dates: start: 20120312
  3. DOXYCYCLINE [Concomitant]
     Indication: RASH
     Route: 048

REACTIONS (4)
  - Injection site reaction [Not Recovered/Not Resolved]
  - Injection site nodule [Not Recovered/Not Resolved]
  - Injection site pain [Not Recovered/Not Resolved]
  - Injection site warmth [Not Recovered/Not Resolved]
